FAERS Safety Report 8515699-8 (Version None)
Quarter: 2012Q3

REPORT INFORMATION
  Report Type: 
  Country: None (occurrence: None)
  Receive Date: 20120717
  Receipt Date: 20120712
  Transmission Date: 20120928
  Serious: Yes (Hospitalization, Disabling, Other)
  Sender: FDA-Public Use
  Company Number: PHHO2012US010346

PATIENT
  Sex: Female
  Weight: 79.9 kg

DRUGS (9)
  1. OMEPRAZOLE [Concomitant]
     Indication: DYSPEPSIA
     Dosage: 20 MG, BID
     Dates: start: 20090101, end: 20120518
  2. PHENIRAMINE MALEATE [Concomitant]
     Indication: NAUSEA
     Dosage: UNK
     Dates: end: 20120709
  3. TKI258 [Suspect]
     Indication: NEOPLASM
     Dosage: 500 MG, UNK (5 DAYS ON/2 DAYS OFF)
     Route: 048
     Dates: start: 20120531, end: 20120706
  4. PROCHLORPERAZINE [Concomitant]
     Indication: NAUSEA
     Dosage: 10 MG, BID
     Route: 048
     Dates: start: 20120628, end: 20120709
  5. IMODIUM A-D [Concomitant]
     Indication: DIARRHOEA
     Dosage: 1 TABLET, DAY
     Dates: start: 20120530, end: 20120709
  6. CYMBALTA [Concomitant]
     Indication: DEPRESSION
     Dosage: 60 MG, QD
     Dates: start: 20120527, end: 20120530
  7. ERGOCALCIFEROL [Concomitant]
     Indication: PROPHYLAXIS
     Dosage: 50000 U, UNK
     Dates: start: 20120623, end: 20120709
  8. GABAPENTIN [Suspect]
     Indication: NEUROPATHY PERIPHERAL
     Dosage: 800 MG, TID
     Dates: start: 20111201, end: 20120709
  9. CETIRIZINE HYDROCHLORIDE [Concomitant]
     Indication: NASAL CONGESTION
     Dosage: 10 MG, QD
     Dates: start: 20110101, end: 20120709

REACTIONS (4)
  - MUSCULAR WEAKNESS [None]
  - CONFUSIONAL STATE [None]
  - BACK PAIN [None]
  - VOMITING [None]
